FAERS Safety Report 18398570 (Version 1)
Quarter: 2020Q4

REPORT INFORMATION
  Report Type: Spontaneous
  Country: US (occurrence: US)
  Receive Date: 20201019
  Receipt Date: 20201019
  Transmission Date: 20210114
  Serious: Yes (Hospitalization)
  Sender: FDA-Public Use
  Company Number: None

PATIENT
  Age: 36 Year
  Sex: Male
  Weight: 95 kg

DRUGS (1)
  1. PALIPERIODONE (PALIPERIDONE PALMITATE 156MG/KIT INJ SUSP, SA) [Suspect]
     Active Substance: PALIPERIDONE PALMITATE
     Indication: BIPOLAR I DISORDER
     Dates: start: 20200820

REACTIONS (3)
  - Bradykinesia [None]
  - Akathisia [None]
  - Bradyphrenia [None]

NARRATIVE: CASE EVENT DATE: 20200914
